FAERS Safety Report 11231602 (Version 2)
Quarter: 2015Q3

REPORT INFORMATION
  Report Type: Report from Study
  Country: AU (occurrence: AU)
  Receive Date: 20150701
  Receipt Date: 20150708
  Transmission Date: 20151125
  Serious: No
  Sender: FDA-Public Use
  Company Number: AU-JNJFOC-20150619354

PATIENT
  Sex: Male
  Weight: 90 kg

DRUGS (2)
  1. REMICADE [Suspect]
     Active Substance: INFLIXIMAB
     Indication: PYODERMA GANGRENOSUM
     Dosage: REMICADE VIAL OF 100 MG WITH THE QUANTITY OF 5 (FINAL DOSE)
     Route: 042
  2. REMICADE [Suspect]
     Active Substance: INFLIXIMAB
     Indication: PRODUCT USED FOR UNKNOWN INDICATION
     Dosage: REMICADE VIAL OF 100 MG WITH THE QUANTITY OF 5 (FINAL DOSE)
     Route: 042

REACTIONS (2)
  - Off label use [Unknown]
  - Incorrect dose administered [Unknown]
